FAERS Safety Report 24962014 (Version 2)
Quarter: 2025Q1

REPORT INFORMATION
  Report Type: Spontaneous
  Country: US (occurrence: US)
  Receive Date: 20250212
  Receipt Date: 20250303
  Transmission Date: 20250409
  Serious: Yes (Other)
  Sender: PFIZER
  Company Number: US-PFIZER INC-202500030357

PATIENT
  Age: 76 Year
  Sex: Female
  Weight: 80.29 kg

DRUGS (9)
  1. PAXLOVID [Suspect]
     Active Substance: NIRMATRELVIR\RITONAVIR
     Indication: COVID-19 treatment
     Route: 048
     Dates: start: 20250206, end: 20250210
  2. CARVEDILOL [Concomitant]
     Active Substance: CARVEDILOL
     Indication: Hypertension
     Dosage: TAKE 1 TABLET TWICE DAILY
  3. DULOXETINE [Concomitant]
     Active Substance: DULOXETINE
     Dosage: TAKE 1 CAPSULE EVERY DAY
  4. GABAPENTIN [Concomitant]
     Active Substance: GABAPENTIN
     Dosage: TAKE 1 (CAP) 3 TIMES A DAY BY ORAL ROUTE
     Route: 048
  5. HUMALOG [Concomitant]
     Active Substance: INSULIN LISPRO
     Route: 058
  6. LANTUS [Concomitant]
     Active Substance: INSULIN GLARGINE
     Dosage: INJECT 30 UNITS EVERY DAY SUBCUTANEOUS ROUTE IN THE MORNING
     Route: 058
  7. PRIMIDONE [Concomitant]
     Active Substance: PRIMIDONE
     Dosage: TAKE 1 TO 2 TABLETS BY MOUTH NIGHTLY
     Route: 048
  8. REMICADE [Concomitant]
     Active Substance: INFLIXIMAB
     Route: 042
  9. BIFIDOBACTERIUM LONGUM\LACTOBACILLUS ACIDOPHILUS\LACTOBACILLUS RHAMNOS [Concomitant]
     Active Substance: BIFIDOBACTERIUM LONGUM\LACTOBACILLUS ACIDOPHILUS\LACTOBACILLUS RHAMNOSUS

REACTIONS (2)
  - Hyperglycaemia [Recovering/Resolving]
  - Condition aggravated [Recovering/Resolving]

NARRATIVE: CASE EVENT DATE: 20250201
